FAERS Safety Report 24453279 (Version 2)
Quarter: 2024Q4

REPORT INFORMATION
  Report Type: Report from Study
  Country: US (occurrence: US)
  Receive Date: 20241017
  Receipt Date: 20241018
  Transmission Date: 20250115
  Serious: No
  Sender: ROCHE
  Company Number: US-ROCHE-3119635

PATIENT
  Age: 50 Year
  Sex: Female
  Weight: 63.5 kg

DRUGS (10)
  1. RITUXAN [Suspect]
     Active Substance: RITUXIMAB
     Indication: Sarcoidosis
     Dosage: THEN EVERY 6 MONTHS?DATE OF TREATMENT: 15/JUN/2022, 29/JUN/2022
     Route: 041
     Dates: end: 2023
  2. RENFLEXIS [Suspect]
     Active Substance: INFLIXIMAB-ABDA
     Indication: Product used for unknown indication
     Route: 065
  3. AMLODIPINE [Concomitant]
     Active Substance: AMLODIPINE BESYLATE
     Route: 048
  4. AMPHETAMINE;DEXTROAMPHETAMINE [Concomitant]
     Dosage: 30 DAYS
     Route: 048
  5. IBUPROFEN [Concomitant]
     Active Substance: IBUPROFEN
     Dosage: TAKE 800MG BY MOUTH AS NEEDED
     Route: 048
  6. LEUCOVORIN [Concomitant]
     Active Substance: LEUCOVORIN\LEUCOVORIN CALCIUM
     Route: 048
  7. METHOTREXATE [Concomitant]
     Active Substance: METHOTREXATE
     Dosage: 0.8ML
     Route: 058
  8. PREDNISONE ACETATE [Concomitant]
     Active Substance: PREDNISONE ACETATE
     Dosage: 1 DROP IN THE RIGHT EYE Q2H FOR 1 WEEK THEN 6X/DAY. 1 DROP IN LEFT EYE Q1H
  9. PREDNISONE [Concomitant]
     Active Substance: PREDNISONE
     Dosage: FOR 7 DAYS THEN 1.5 TABLET ONCE DAILY FOR 7 DAYS
     Route: 048
  10. PROMETHAZINE [Concomitant]
     Active Substance: PROMETHAZINE HYDROCHLORIDE
     Dosage: 1/2 TO 1 PO Q8H PRN FOR HEADACHE OR NAUSEA
     Route: 048

REACTIONS (7)
  - Off label use [Unknown]
  - Dyspnoea [Recovered/Resolved]
  - Personality change [Recovered/Resolved]
  - Palpitations [Recovered/Resolved]
  - Depression [Recovered/Resolved]
  - Psoriasis [Recovered/Resolved]
  - Fatigue [Recovered/Resolved]
